FAERS Safety Report 7122546-8 (Version None)
Quarter: 2010Q4

REPORT INFORMATION
  Report Type: 
  Country: None (occurrence: None)
  Receive Date: 20101124
  Receipt Date: 20101111
  Transmission Date: 20110411
  Serious: Yes (Other)
  Sender: FDA-Public Use
  Company Number: US-WATSON-2010-14799

PATIENT
  Sex: Male
  Weight: 71.655 kg

DRUGS (2)
  1. FENTANYL-100 [Suspect]
     Indication: PAIN
     Dosage: 1 PATCH Q 2 DAYS
     Route: 062
  2. FENTANYL-50 [Suspect]
     Indication: PAIN
     Dosage: 1 PATCH Q 2 DAYS
     Route: 062

REACTIONS (3)
  - LOSS OF CONSCIOUSNESS [None]
  - MEMORY IMPAIRMENT [None]
  - SOMNOLENCE [None]
